FAERS Safety Report 8406706-1 (Version None)
Quarter: 2012Q2

REPORT INFORMATION
  Report Type: 
  Country: None (occurrence: None)
  Receive Date: 20120604
  Receipt Date: 20120529
  Transmission Date: 20120825
  Serious: Yes (Life-Threatening, Hospitalization, Other)
  Sender: FDA-Public Use
  Company Number: PHHY2012FR046051

PATIENT
  Sex: Male

DRUGS (1)
  1. CLOZAPINE [Suspect]
     Route: 048
     Dates: start: 20120509

REACTIONS (17)
  - TREMOR [None]
  - HYPERTHERMIA [None]
  - EXTRAPYRAMIDAL DISORDER [None]
  - AGITATION [None]
  - ANTIPSYCHOTIC DRUG LEVEL ABOVE THERAPEUTIC [None]
  - HYPERNATRAEMIA [None]
  - ABNORMAL BEHAVIOUR [None]
  - CYTOLYTIC HEPATITIS [None]
  - CONFUSIONAL STATE [None]
  - BLOOD CREATINE PHOSPHOKINASE INCREASED [None]
  - MUSCULOSKELETAL STIFFNESS [None]
  - LUNG DISORDER [None]
  - TACHYCARDIA [None]
  - RHABDOMYOLYSIS [None]
  - BLOOD POTASSIUM DECREASED [None]
  - COMA [None]
  - MYDRIASIS [None]
